FAERS Safety Report 7981181-X (Version None)
Quarter: 2011Q4

REPORT INFORMATION
  Report Type: 
  Country: None (occurrence: None)
  Receive Date: 20111215
  Receipt Date: 20111205
  Transmission Date: 20120403
  Serious: Yes (Hospitalization)
  Sender: FDA-Public Use
  Company Number: US-BAYER-2011-041855

PATIENT
  Age: 37 Year
  Sex: Female
  Weight: 61.224 kg

DRUGS (3)
  1. YASMIN [Suspect]
     Indication: ACNE
  2. PREDNISONE [Concomitant]
     Indication: IDIOPATHIC THROMBOCYTOPENIC PURPURA
     Dosage: 5 MG, UNK
     Route: 048
     Dates: start: 19990101, end: 20050101
  3. YASMIN [Suspect]
     Indication: CONTRACEPTION
     Dosage: UNK
     Dates: start: 20030601, end: 20031016

REACTIONS (11)
  - ANXIETY [None]
  - INJURY [None]
  - EMOTIONAL DISTRESS [None]
  - PULMONARY EMBOLISM [None]
  - CHEST PAIN [None]
  - LUNG DISORDER [None]
  - CARDIAC DISORDER [None]
  - BACK PAIN [None]
  - DYSPNOEA [None]
  - PAIN [None]
  - POST-TRAUMATIC STRESS DISORDER [None]
